FAERS Safety Report 14756392 (Version 3)
Quarter: 2020Q2

REPORT INFORMATION
  Report Type: Spontaneous
  Country: US (occurrence: US)
  Receive Date: 20180413
  Receipt Date: 20200508
  Transmission Date: 20200713
  Serious: Yes (Hospitalization, Other)
  Sender: FDA-Public Use
  Company Number: US-ASTRAZENECA-2018SE44967

PATIENT
  Age: 15970 Day
  Sex: Female
  Weight: 77.8 kg

DRUGS (26)
  1. GUAIFENESIN. [Concomitant]
     Active Substance: GUAIFENESIN
  2. LISINOPRIL. [Concomitant]
     Active Substance: LISINOPRIL
  3. GLIPIZIDE. [Concomitant]
     Active Substance: GLIPIZIDE
  4. LEVOTHYROXINE. [Concomitant]
     Active Substance: LEVOTHYROXINE
  5. ATORVASTATIN CALCIUM. [Concomitant]
     Active Substance: ATORVASTATIN CALCIUM
  6. METFORMIN [Concomitant]
     Active Substance: METFORMIN HYDROCHLORIDE
  7. KOMBIGLYZE XR [Suspect]
     Active Substance: METFORMIN HYDROCHLORIDE\SAXAGLIPTIN HYDROCHLORIDE
     Indication: DIABETES MELLITUS
     Dosage: GENERIC- 2.5/500 ONE TAB P.O. DAILY. UNKNOWN
     Route: 065
     Dates: start: 20160712
  8. ONGLYZA [Suspect]
     Active Substance: SAXAGLIPTIN HYDROCHLORIDE
     Route: 048
     Dates: start: 2013, end: 2017
  9. CEFTRIAXONE SODIUM. [Concomitant]
     Active Substance: CEFTRIAXONE SODIUM
  10. CLONIDINE. [Concomitant]
     Active Substance: CLONIDINE
  11. METOPROLOL TARTRATE. [Concomitant]
     Active Substance: METOPROLOL TARTRATE
  12. HYDROCHLOROTHIAZIDE. [Concomitant]
     Active Substance: HYDROCHLOROTHIAZIDE
  13. OMEPRAZOLE. [Concomitant]
     Active Substance: OMEPRAZOLE
  14. FUROSEMIDE. [Concomitant]
     Active Substance: FUROSEMIDE
  15. KOMBIGLYZE XR [Suspect]
     Active Substance: METFORMIN HYDROCHLORIDE\SAXAGLIPTIN HYDROCHLORIDE
     Indication: DIABETES MELLITUS
     Route: 048
     Dates: start: 2013, end: 2017
  16. KOMBIGLYZE XR [Suspect]
     Active Substance: METFORMIN HYDROCHLORIDE\SAXAGLIPTIN HYDROCHLORIDE
     Indication: DIABETES MELLITUS
     Dosage: 5-1000 MG
     Route: 048
     Dates: start: 20151022
  17. KOMBIGLYZE XR [Suspect]
     Active Substance: METFORMIN HYDROCHLORIDE\SAXAGLIPTIN HYDROCHLORIDE
     Indication: DIABETES MELLITUS
     Dosage: 5.0MG UNKNOWN
     Route: 048
     Dates: start: 20151021, end: 20160202
  18. LEVOTHYROXINE SODIUM. [Concomitant]
     Active Substance: LEVOTHYROXINE SODIUM
  19. ASPIRIN. [Concomitant]
     Active Substance: ASPIRIN
  20. AZITHROMYCIN ANHYDROUS. [Concomitant]
     Active Substance: AZITHROMYCIN ANHYDROUS
  21. FAMOTIDINE. [Concomitant]
     Active Substance: FAMOTIDINE
  22. INSULIN DETEMIR [Concomitant]
     Active Substance: INSULIN DETEMIR
  23. LEVETIRACETAM. [Concomitant]
     Active Substance: LEVETIRACETAM
  24. AMLODIPINE BESILATE [Concomitant]
     Active Substance: AMLODIPINE BESYLATE
  25. ENOXACIN [Concomitant]
     Active Substance: ENOXACIN
  26. LANTUS [Concomitant]
     Active Substance: INSULIN GLARGINE

REACTIONS (6)
  - Myocardial infarction [Unknown]
  - Cardiac failure congestive [Unknown]
  - Cardiovascular disorder [Unknown]
  - Acute respiratory failure [Unknown]
  - Cardiac failure [Unknown]
  - Hypertensive heart disease [Unknown]

NARRATIVE: CASE EVENT DATE: 20160222
